FAERS Safety Report 4432250-2 (Version None)
Quarter: 2004Q3

REPORT INFORMATION
  Report Type: 
  Country: None (occurrence: None)
  Receive Date: 20040825
  Receipt Date: 20040612
  Transmission Date: 20050211
  Serious: Yes (Hospitalization)
  Sender: FDA-Public Use
  Company Number: SE-MERCK-0406SWE00010

PATIENT
  Age: 15 Year
  Sex: Male

DRUGS (6)
  1. BUDESONIDE AND FORMOTEROL FUMARATE [Concomitant]
     Route: 065
  2. DESLORATADINE [Concomitant]
     Route: 065
  3. FORMOTEROL FUMARATE [Concomitant]
     Route: 065
  4. SINGULAIR [Suspect]
     Indication: ASTHMA
     Route: 048
     Dates: start: 20021101, end: 20030101
  5. SINGULAIR [Suspect]
     Route: 048
     Dates: start: 20030101, end: 20040401
  6. TERBUTALINE SULFATE [Concomitant]
     Route: 065

REACTIONS (1)
  - COLITIS ULCERATIVE [None]
